FAERS Safety Report 10473620 (Version 3)
Quarter: 2014Q4

REPORT INFORMATION
  Report Type: Spontaneous
  Country: US (occurrence: US)
  Receive Date: 20140924
  Receipt Date: 20141009
  Transmission Date: 20150528
  Serious: Yes (Death, Hospitalization)
  Sender: FDA-Public Use
  Company Number: US-BAXTER-2014BAX053345

PATIENT
  Sex: Female

DRUGS (2)
  1. DIANEAL LOW CALCIUM PERITONEAL DIALYSIS SOLUTION WITH DEXTROSE [Suspect]
     Active Substance: CALCIUM CHLORIDE\DEXTROSE\MAGNESIUM CHLORIDE\SODIUM CHLORIDE\SODIUM LACTATE
     Indication: CHRONIC KIDNEY DISEASE
     Route: 033
     Dates: start: 20140827, end: 20140928
  2. DIANEAL LOW CALCIUM PERITONEAL DIALYSIS SOLUTION WITH DEXTROSE [Suspect]
     Active Substance: CALCIUM CHLORIDE\DEXTROSE\MAGNESIUM CHLORIDE\SODIUM CHLORIDE\SODIUM LACTATE
     Indication: CHRONIC KIDNEY DISEASE
     Route: 033
     Dates: end: 20140928

REACTIONS (2)
  - Hypotension [Unknown]
  - Cardiac arrest [Fatal]

NARRATIVE: CASE EVENT DATE: 20140928
